FAERS Safety Report 17654037 (Version 2)
Quarter: 2020Q2

REPORT INFORMATION
  Report Type: Spontaneous
  Country: US (occurrence: US)
  Receive Date: 20200410
  Receipt Date: 20200518
  Transmission Date: 20200713
  Serious: No
  Sender: FDA-Public Use
  Company Number: US-ASTRAZENECA-2020SE48853

PATIENT
  Sex: Male
  Weight: 82.6 kg

DRUGS (1)
  1. BYDUREON [Suspect]
     Active Substance: EXENATIDE
     Indication: BLOOD GLUCOSE DECREASED
     Dosage: 2 MG 4 TIMES PER MONTH
     Route: 058
     Dates: start: 20200101

REACTIONS (2)
  - Device malfunction [Unknown]
  - Injection site mass [Unknown]
